FAERS Safety Report 5529769-X (Version None)
Quarter: 2007Q4

REPORT INFORMATION
  Report Type: 
  Country: None (occurrence: None)
  Receive Date: 20071127
  Receipt Date: 20071114
  Transmission Date: 20080405
  Serious: Yes (Hospitalization)
  Sender: FDA-Public Use
  Company Number: GXKR2007US09785

PATIENT
  Age: 35 Year
  Sex: Female

DRUGS (8)
  1. FLUOXETINE [Suspect]
     Indication: FATIGUE
     Dosage: 40 MG, QD
  2. MODAFINIL [Suspect]
     Indication: FATIGUE
     Dosage: 200 MG, QD
  3. AMANTADINE HCL [Concomitant]
  4. OXYBUTYNIN CHLORIDE [Concomitant]
  5. INTERFERON BETA (INTERFERON BETA) [Concomitant]
  6. LEVOTHYROXINE SODIUM [Concomitant]
  7. BACLOFEN [Concomitant]
  8. SYNTHROID [Concomitant]

REACTIONS (12)
  - ABNORMAL DREAMS [None]
  - AFFECT LABILITY [None]
  - CONFUSIONAL STATE [None]
  - DELIRIUM [None]
  - DELUSION OF GRANDEUR [None]
  - DEPERSONALISATION [None]
  - DIARRHOEA [None]
  - DISORIENTATION [None]
  - DRUG WITHDRAWAL SYNDROME [None]
  - HALLUCINATION, AUDITORY [None]
  - HALLUCINATION, VISUAL [None]
  - INFLUENZA LIKE ILLNESS [None]
